FAERS Safety Report 7177668-2 (Version None)
Quarter: 2010Q4

REPORT INFORMATION
  Report Type: 
  Country: None (occurrence: None)
  Receive Date: 20101220
  Receipt Date: 20101208
  Transmission Date: 20110411
  Serious: Yes (Hospitalization)
  Sender: FDA-Public Use
  Company Number: NL-MEDIMMUNE-MEDI-0011885

PATIENT
  Sex: Male
  Weight: 6.1 kg

DRUGS (4)
  1. SYNAGIS [Suspect]
     Route: 030
     Dates: start: 20100903, end: 20100903
  2. SYNAGIS [Suspect]
     Route: 030
     Dates: start: 20101004, end: 20101101
  3. SALBUTAMOL [Concomitant]
     Indication: SENSE OF OPPRESSION
  4. AVAR [Concomitant]
     Route: 055

REACTIONS (3)
  - BRONCHIAL OBSTRUCTION [None]
  - SENSE OF OPPRESSION [None]
  - TACHYPNOEA [None]
